FAERS Safety Report 9460759 (Version 1)
Quarter: 2013Q3

REPORT INFORMATION
  Report Type: Report from Study
  Country: US (occurrence: US)
  Receive Date: 20130815
  Receipt Date: 20130815
  Transmission Date: 20140515
  Serious: Yes (Congenital Anomaly)
  Sender: FDA-Public Use
  Company Number: US-VIIV HEALTHCARE LIMITED-A1037698A

PATIENT
  Sex: Male
  Weight: 3 kg

DRUGS (2)
  1. RETROVIR [Suspect]
     Indication: ANTIRETROVIRAL THERAPY
     Route: 064
  2. ANTIBIOTICS [Concomitant]

REACTIONS (2)
  - Hypoplastic left heart syndrome [Unknown]
  - Foetal exposure during pregnancy [Unknown]
